FAERS Safety Report 5865021-0 (Version None)
Quarter: 2008Q3

REPORT INFORMATION
  Report Type: 
  Country: None (occurrence: None)
  Receive Date: 20080829
  Receipt Date: 20080822
  Transmission Date: 20090109
  Serious: Yes (Hospitalization)
  Sender: FDA-Public Use
  Company Number: A0693031A

PATIENT
  Age: 56 Year
  Sex: Female
  Weight: 76.8 kg

DRUGS (3)
  1. AVANDIA [Suspect]
     Dosage: 4MG PER DAY
     Route: 048
     Dates: start: 20050701, end: 20060119
  2. METFORMIN HCL [Concomitant]
     Dates: start: 20000101, end: 20060101
  3. DIABETA [Concomitant]
     Dates: start: 20000101, end: 20060101

REACTIONS (5)
  - ACUTE CORONARY SYNDROME [None]
  - ARTERIAL OCCLUSIVE DISEASE [None]
  - CARDIAC DISORDER [None]
  - CARDIAC FAILURE CONGESTIVE [None]
  - DEPRESSION [None]
